FAERS Safety Report 7877160-3 (Version None)
Quarter: 2011Q4

REPORT INFORMATION
  Report Type: 
  Country: None (occurrence: None)
  Receive Date: 20111031
  Receipt Date: 20111021
  Transmission Date: 20120403
  Serious: Yes (Hospitalization)
  Sender: FDA-Public Use
  Company Number: US-BAYER-2011-055336

PATIENT
  Age: 27 Year
  Sex: Female
  Weight: 86.168 kg

DRUGS (12)
  1. PREVACID [Concomitant]
  2. GLIBARID [Concomitant]
  3. CLOMID [Concomitant]
  4. PEPCID [Concomitant]
  5. IBUPROFEN [Concomitant]
     Dosage: UNK UNK, PRN
  6. METFORMIN HCL [Concomitant]
  7. YAZ [Suspect]
     Indication: PREMENSTRUAL SYNDROME
  8. PERCOCET [Concomitant]
  9. YAZ [Suspect]
     Indication: ACNE
     Dosage: UNK
     Dates: start: 20090101, end: 20090401
  10. YAZ [Suspect]
  11. DIETHYLPROPION [Concomitant]
     Dosage: UNK
     Dates: start: 20090206
  12. HYDROCODONE BITARTRATE [Concomitant]

REACTIONS (4)
  - PAIN [None]
  - GALLBLADDER DISORDER [None]
  - CHOLECYSTITIS [None]
  - BILIARY COLIC [None]
